FAERS Safety Report 17041187 (Version 1)
Quarter: 2019Q4

REPORT INFORMATION
  Report Type: Spontaneous
  Country: AU (occurrence: AU)
  Receive Date: 20191118
  Receipt Date: 20191118
  Transmission Date: 20200122
  Serious: Yes (Congenital Anomaly, Other)
  Sender: FDA-Public Use
  Company Number: AU-TEVA-2019-AU-1136526

PATIENT
  Age: 60 Year
  Sex: Male

DRUGS (9)
  1. VINCRISTINE [Concomitant]
     Active Substance: VINCRISTINE
     Dosage: .2857 MILLIGRAM DAILY;
     Route: 065
     Dates: start: 20171218
  2. FLUDARABINE [Concomitant]
     Active Substance: FLUDARABINE PHOSPHATE
     Route: 065
     Dates: start: 20171015
  3. DEXAMETHASONE. [Concomitant]
     Active Substance: DEXAMETHASONE
     Dosage: 5.7143 MILLIGRAM DAILY;
     Route: 065
     Dates: start: 20171218
  4. BLINATUMOMAB [Concomitant]
     Active Substance: BLINATUMOMAB
     Route: 065
     Dates: start: 20180927
  5. IMATINIB. [Suspect]
     Active Substance: IMATINIB MESYLATE
     Dosage: DOSAGE UNKNOWN
     Route: 048
     Dates: start: 20171127, end: 20171214
  6. INOTUZUMAB [Concomitant]
     Active Substance: INOTUZUMAB OZOGAMICIN
     Route: 065
     Dates: start: 20190708
  7. IMATINIB. [Suspect]
     Active Substance: IMATINIB MESYLATE
     Indication: B-CELL TYPE ACUTE LEUKAEMIA
     Dosage: DOSAGE UNKNOWN. ADMINISTRATION WITH HYPER-CVAD
     Route: 048
     Dates: start: 20170510, end: 20171015
  8. CYCLOPHOSPHAMIDE. [Concomitant]
     Active Substance: CYCLOPHOSPHAMIDE
     Route: 065
     Dates: start: 20171015
  9. DASATINIB. [Concomitant]
     Active Substance: DASATINIB
     Route: 065
     Dates: start: 20171214

REACTIONS (10)
  - Central nervous system leukaemia [Unknown]
  - Leukaemia recurrent [Not Recovered/Not Resolved]
  - Yersinia sepsis [Unknown]
  - Blast cells present [Not Recovered/Not Resolved]
  - Therapeutic response decreased [Unknown]
  - Malaise [Unknown]
  - Leukaemia recurrent [Unknown]
  - Blast cells present [Not Recovered/Not Resolved]
  - Gene mutation [Unknown]
  - Nervous system disorder [Unknown]

NARRATIVE: CASE EVENT DATE: 20170701
